FAERS Safety Report 13395572 (Version 1)
Quarter: 2017Q2

REPORT INFORMATION
  Report Type: Spontaneous
  Country: US (occurrence: US)
  Receive Date: 20170403
  Receipt Date: 20170403
  Transmission Date: 20170830
  Serious: No
  Sender: FDA-Public Use
  Company Number: US-BEH-2017079270

PATIENT
  Age: 17 Year
  Sex: Female
  Weight: 33.11 kg

DRUGS (1)
  1. HIZENTRA [Suspect]
     Active Substance: HUMAN IMMUNOGLOBULIN G
     Indication: IMMUNODEFICIENCY
     Dosage: 7 G, QOW
     Route: 058
     Dates: start: 20151203

REACTIONS (2)
  - Headache [Unknown]
  - Nausea [Unknown]
